FAERS Safety Report 20506131 (Version 1)
Quarter: 2022Q1

REPORT INFORMATION
  Report Type: Spontaneous
  Country: US (occurrence: US)
  Receive Date: 20220223
  Receipt Date: 20220223
  Transmission Date: 20220424
  Serious: No
  Sender: FDA-Public Use
  Company Number: US-BAYER-2022A027306

PATIENT
  Age: 63 Year
  Sex: Male

DRUGS (1)
  1. KERENDIA [Suspect]
     Active Substance: FINERENONE
     Dosage: 20 MG

REACTIONS (1)
  - Dyspnoea [None]
